FAERS Safety Report 11281425 (Version 3)
Quarter: 2015Q4

REPORT INFORMATION
  Report Type: Spontaneous
  Country: US (occurrence: US)
  Receive Date: 20150717
  Receipt Date: 20151116
  Transmission Date: 20160304
  Serious: Yes (Other)
  Sender: FDA-Public Use
  Company Number: US-PFIZER INC-2015237762

PATIENT
  Age: 43 Year
  Sex: Male
  Weight: 107 kg

DRUGS (2)
  1. GENOTROPIN [Suspect]
     Active Substance: SOMATROPIN
     Indication: GROWTH HORMONE DEFICIENCY
     Dosage: 0.3 MG, 2X/DAY
     Route: 058
     Dates: start: 201401
  2. TESTOSTERONE. [Concomitant]
     Active Substance: TESTOSTERONE
     Indication: HYPOGONADISM
     Dosage: UNK, 1X/DAY AFTER THE SHOWER

REACTIONS (2)
  - Sleep apnoea syndrome [Not Recovered/Not Resolved]
  - Lyme disease [Not Recovered/Not Resolved]

NARRATIVE: CASE EVENT DATE: 201408
